FAERS Safety Report 5513263-6 (Version None)
Quarter: 2007Q4

REPORT INFORMATION
  Report Type: 
  Country: None (occurrence: None)
  Receive Date: 20071108
  Receipt Date: 20071022
  Transmission Date: 20080405
  Serious: Yes (Death, Hospitalization, Other)
  Sender: FDA-Public Use
  Company Number: 39526-3

PATIENT
  Age: 77 Year
  Sex: Female

DRUGS (1)
  1. LEUCOVORIN CALCIUM [Suspect]
     Indication: COLORECTAL CANCER METASTATIC
     Dosage: 400 MG/M2 IV
     Route: 042
     Dates: start: 20070713, end: 20070701

REACTIONS (11)
  - ABDOMINAL PAIN [None]
  - ASTHENIA [None]
  - ATRIAL FIBRILLATION [None]
  - CARDIAC DISORDER [None]
  - DYSPHAGIA [None]
  - FEBRILE NEUTROPENIA [None]
  - FLUID INTAKE REDUCED [None]
  - HEART RATE INCREASED [None]
  - PULMONARY EMBOLISM [None]
  - RESPIRATORY FAILURE [None]
  - STOMATITIS [None]
